FAERS Safety Report 26146145 (Version 1)
Quarter: 2025Q4

REPORT INFORMATION
  Report Type: Report from Study
  Country: US (occurrence: US)
  Receive Date: 20251211
  Receipt Date: 20251211
  Transmission Date: 20260118
  Serious: Yes (Death)
  Sender: ABBVIE
  Company Number: US-ABBVIE-6582755

PATIENT
  Age: 69 Year
  Sex: Female

DRUGS (1)
  1. HUMIRA [Suspect]
     Active Substance: ADALIMUMAB
     Indication: Product used for unknown indication
     Route: 058
     Dates: start: 20161205

REACTIONS (4)
  - Death [Fatal]
  - Unevaluable event [Unknown]
  - Diabetes mellitus [Unknown]
  - Ammonia increased [Unknown]

NARRATIVE: CASE EVENT DATE: 20251114
